FAERS Safety Report 12811411 (Version 2)
Quarter: 2016Q4

REPORT INFORMATION
  Report Type: Spontaneous
  Country: US (occurrence: US)
  Receive Date: 20161005
  Receipt Date: 20161208
  Transmission Date: 20170207
  Serious: No
  Sender: FDA-Public Use
  Company Number: US-PFIZER INC-2016462554

PATIENT
  Age: 81 Year
  Sex: Male

DRUGS (2)
  1. REVATIO [Suspect]
     Active Substance: SILDENAFIL CITRATE
     Indication: ANGIOPATHY
     Dosage: 1 PILL, 3X/DAY
     Dates: start: 20160901
  2. REVATIO [Suspect]
     Active Substance: SILDENAFIL CITRATE
     Dosage: 1-2 PILLS DAILY

REACTIONS (2)
  - Abdominal discomfort [Not Recovered/Not Resolved]
  - Product use issue [Not Recovered/Not Resolved]

NARRATIVE: CASE EVENT DATE: 2016
